FAERS Safety Report 15746851 (Version 1)
Quarter: 2018Q4

REPORT INFORMATION
  Report Type: Spontaneous
  Country: BR (occurrence: BR)
  Receive Date: 20181220
  Receipt Date: 20181220
  Transmission Date: 20190205
  Serious: Yes (Other)
  Sender: FDA-Public Use
  Company Number: PHHY2018BR016200

PATIENT
  Sex: Female
  Weight: 76 kg

DRUGS (2)
  1. AMOXICILLIN SODIUM+POTASSIUM CLAVULANATE SANDOZ [Suspect]
     Active Substance: AMOXICILLIN\CLAVULANATE POTASSIUM
     Indication: EAR INFECTION
  2. AMOXICILLIN SODIUM+POTASSIUM CLAVULANATE SANDOZ [Suspect]
     Active Substance: AMOXICILLIN\CLAVULANATE POTASSIUM
     Indication: SINUSITIS
     Dosage: 1 DF, Q8H FOR 7 DAYS
     Route: 048
     Dates: start: 20180517, end: 20180525

REACTIONS (3)
  - Immunodeficiency [Unknown]
  - Vulvovaginal candidiasis [Unknown]
  - Chromaturia [Not Recovered/Not Resolved]
